FAERS Safety Report 6677652-9 (Version None)
Quarter: 2010Q2

REPORT INFORMATION
  Report Type: 
  Country: None (occurrence: None)
  Receive Date: 20100412
  Receipt Date: 20100302
  Transmission Date: 20101027
  Serious: No
  Sender: FDA-Public Use
  Company Number: US-ALEXION-A201000241

PATIENT
  Sex: Female

DRUGS (15)
  1. SOLIRIS [Suspect]
     Indication: PAROXYSMAL NOCTURNAL HAEMOGLOBINURIA
     Dosage: 600 MG, QWKX4
     Route: 042
     Dates: start: 20100128, end: 20100219
  2. SOLIRIS [Suspect]
     Dosage: 900 MG, UNK
     Route: 042
     Dates: start: 20100226
  3. PREDNISOLONE [Concomitant]
     Indication: PAROXYSMAL NOCTURNAL HAEMOGLOBINURIA
     Dosage: UNK
     Route: 048
  4. PLAQUENIL [Concomitant]
     Indication: RHEUMATOID ARTHRITIS
     Dosage: UNK
     Route: 048
  5. METHOTREXATE [Concomitant]
     Indication: RHEUMATOID ARTHRITIS
     Dosage: UNK
     Route: 048
  6. FOLIC ACID [Concomitant]
     Indication: PAROXYSMAL NOCTURNAL HAEMOGLOBINURIA
     Dosage: UNK
     Route: 048
  7. EFFEXOR XR [Concomitant]
     Dosage: UNK
     Route: 048
  8. TYLENOL (CAPLET) [Concomitant]
     Dosage: UNK
     Route: 048
  9. CALTRATE                           /00108001/ [Concomitant]
     Dosage: UNK
     Route: 048
  10. TRAZODONE [Concomitant]
     Dosage: UNK
     Route: 048
  11. COLACE [Concomitant]
     Dosage: UNK
     Route: 048
  12. METAMUCIL                          /00029101/ [Concomitant]
     Dosage: UNK
     Route: 048
  13. ULTRAM [Concomitant]
     Dosage: UNK
     Route: 048
  14. BONIVA [Concomitant]
     Dosage: UNK
     Route: 048
  15. ZIAC                               /01166101/ [Concomitant]
     Dosage: UNK
     Route: 048

REACTIONS (2)
  - DYSPNOEA [None]
  - FATIGUE [None]
